FAERS Safety Report 25085613 (Version 1)
Quarter: 2025Q1

REPORT INFORMATION
  Report Type: Spontaneous
  Country: FR (occurrence: FR)
  Receive Date: 20250317
  Receipt Date: 20250317
  Transmission Date: 20250408
  Serious: Yes (Other)
  Sender: TAKEDA
  Company Number: None

PATIENT
  Age: 75 Year
  Sex: Female
  Weight: 54 kg

DRUGS (6)
  1. LANSOPRAZOLE [Suspect]
     Active Substance: LANSOPRAZOLE
     Indication: Gastrooesophageal reflux disease
     Dosage: 15 MILLIGRAM, QD
     Dates: start: 20240719
  2. RAMIPRIL [Suspect]
     Active Substance: RAMIPRIL
     Indication: Scleroderma renal crisis
     Dosage: 2.5 MILLIGRAM, Q12H
     Dates: start: 20231110
  3. ACETAMINOPHEN [Suspect]
     Active Substance: ACETAMINOPHEN
     Indication: Pain
     Dosage: 1 GRAM, Q12H
     Dates: start: 20240719
  4. BOSENTAN [Suspect]
     Active Substance: BOSENTAN
     Indication: Pulmonary arterial hypertension
     Dosage: 125 MILLIGRAM, Q12H
     Dates: start: 2022
  5. FUROSEMIDE [Suspect]
     Active Substance: FUROSEMIDE
     Indication: Scleroderma renal crisis
     Dosage: 40 MILLIGRAM, QD
     Dates: start: 20231110
  6. CETIRIZINE HYDROCHLORIDE [Suspect]
     Active Substance: CETIRIZINE HYDROCHLORIDE
     Indication: Pruritus
     Dosage: 10 MILLIGRAM, QD
     Dates: start: 20240728, end: 20240819

REACTIONS (1)
  - Hepatitis cholestatic [Not Recovered/Not Resolved]

NARRATIVE: CASE EVENT DATE: 20240731
